FAERS Safety Report 6912104-X (Version None)
Quarter: 2010Q3

REPORT INFORMATION
  Report Type: 
  Country: None (occurrence: None)
  Receive Date: 20100806
  Receipt Date: 20071228
  Transmission Date: 20110219
  Serious: No
  Sender: FDA-Public Use
  Company Number: US-PFIZER INC-2008000449

PATIENT
  Sex: Male

DRUGS (3)
  1. GLIPIZIDE [Suspect]
  2. METFORMIN HCL [Suspect]
  3. AVANDIA [Suspect]

REACTIONS (1)
  - ABDOMINAL PAIN UPPER [None]
